FAERS Safety Report 6760221-X (Version None)
Quarter: 2010Q2

REPORT INFORMATION
  Report Type: 
  Country: None (occurrence: None)
  Receive Date: 20100608
  Receipt Date: 20000629
  Transmission Date: 20101027
  Serious: No
  Sender: FDA-Public Use
  Company Number: 2000SUS0534

PATIENT
  Sex: Female

DRUGS (1)
  1. SUSTIVA [Suspect]
     Indication: ADVERSE EVENT

REACTIONS (1)
  - PREGNANCY [None]
